FAERS Safety Report 4788452-9 (Version None)
Quarter: 2005Q4

REPORT INFORMATION
  Report Type: 
  Country: None (occurrence: None)
  Receive Date: 20051003
  Receipt Date: 20050919
  Transmission Date: 20060501
  Serious: Yes (Other)
  Sender: FDA-Public Use
  Company Number: ERD2003A00052

PATIENT
  Age: 46 Year
  Sex: Male

DRUGS (7)
  1. PIOGLITAZONE HCL [Suspect]
     Indication: DIABETES MELLITUS NON-INSULIN-DEPENDENT
     Dosage: 45 MG, ORAL
     Route: 048
     Dates: start: 20011217, end: 20030304
  2. SIMVASTATIN [Suspect]
     Dosage: 20 MG
     Dates: start: 20020501, end: 20030305
  3. ISOSORBIDE DINITRATE [Concomitant]
  4. METOPROLOL TARTRATE [Concomitant]
  5. ACETYLSALICLIC ACID 9ACETYLSALICYLIC ACID0 [Concomitant]
  6. ENALAPRIL MALEATE [Concomitant]
  7. GLICLAZIDE (GLICLAZIDE) [Concomitant]

REACTIONS (1)
  - HEPATITIS TOXIC [None]
